FAERS Safety Report 10032787 (Version 2)
Quarter: 2014Q2

REPORT INFORMATION
  Report Type: Spontaneous
  Country: FR (occurrence: FR)
  Receive Date: 20140324
  Receipt Date: 20140402
  Transmission Date: 20141212
  Serious: Yes (Hospitalization)
  Sender: FDA-Public Use
  Company Number: FR-TEVA-470583ISR

PATIENT
  Age: 33 Year
  Sex: Female

DRUGS (1)
  1. AMOXICILLIN/ CLAVULONIC ACID TEVA ` [Suspect]
     Indication: INFECTION
     Route: 048
     Dates: start: 201309, end: 201310

REACTIONS (3)
  - Pseudomembranous colitis [Recovered/Resolved]
  - Weight decreased [Unknown]
  - Asthenia [Unknown]
